FAERS Safety Report 4980401-3 (Version None)
Quarter: 2006Q2

REPORT INFORMATION
  Report Type: 
  Country: None (occurrence: None)
  Receive Date: 20060424
  Receipt Date: 20051028
  Transmission Date: 20061013
  Serious: Yes (Other)
  Sender: FDA-Public Use
  Company Number: US-GLAXOSMITHKLINE-A0580082A

PATIENT
  Age: 39 Year
  Sex: Male

DRUGS (4)
  1. PAXIL [Suspect]
     Indication: DEPRESSION
     Dosage: 10MG PER DAY
     Route: 048
     Dates: start: 20050916, end: 20050919
  2. WELLBUTRIN [Suspect]
     Indication: DEPRESSION
     Route: 048
  3. LAMICTAL [Suspect]
     Indication: DEPRESSION
     Route: 048
  4. NO CONCURRENT MEDICATIONS [Concomitant]

REACTIONS (12)
  - ANOREXIA [None]
  - ANXIETY [None]
  - CRYING [None]
  - DRUG INEFFECTIVE [None]
  - DRUG WITHDRAWAL SYNDROME [None]
  - FEELING HOT [None]
  - HEADACHE [None]
  - INSOMNIA [None]
  - NAUSEA [None]
  - PARAESTHESIA [None]
  - SUICIDAL IDEATION [None]
  - WEIGHT DECREASED [None]
